FAERS Safety Report 9814876 (Version 2)
Quarter: 2014Q2

REPORT INFORMATION
  Report Type: Spontaneous
  Country: US (occurrence: US)
  Receive Date: 20140113
  Receipt Date: 20140418
  Transmission Date: 20141212
  Serious: No
  Sender: FDA-Public Use
  Company Number: US-GILEAD-2014-0091920

PATIENT
  Sex: Female

DRUGS (3)
  1. LETAIRIS [Suspect]
     Indication: PULMONARY HYPERTENSION
     Dosage: 5 MG, QD
     Route: 048
     Dates: start: 20130512
  2. LETAIRIS [Suspect]
     Indication: SARCOIDOSIS
  3. OXYGEN [Concomitant]

REACTIONS (2)
  - Dyspnoea [Unknown]
  - Sinusitis [Unknown]
